FAERS Safety Report 9511316 (Version 1)
Quarter: 2013Q3

REPORT INFORMATION
  Report Type: Spontaneous
  Country: US (occurrence: None)
  Receive Date: 20130909
  Receipt Date: 20130909
  Transmission Date: 20140515
  Serious: Yes (Other)
  Sender: FDA-Public Use
  Company Number: None

PATIENT
  Age: 34 Year
  Sex: Male
  Weight: 88.45 kg

DRUGS (6)
  1. ONFI LUNBECK [Suspect]
     Indication: THERAPY CHANGE
  2. FELBAMATE [Concomitant]
  3. DEPAKOTE [Concomitant]
  4. VITAMIN E [Concomitant]
  5. FIBER TABS [Concomitant]
  6. CENTRUM [Concomitant]

REACTIONS (2)
  - Convulsion [None]
  - Gait disturbance [None]
